FAERS Safety Report 6913728-6 (Version None)
Quarter: 2010Q3

REPORT INFORMATION
  Report Type: 
  Country: None (occurrence: None)
  Receive Date: 20100806
  Receipt Date: 20100806
  Transmission Date: 20110219
  Serious: No
  Sender: FDA-Public Use
  Company Number: None

PATIENT
  Sex: Male
  Weight: 93.8946 kg

DRUGS (1)
  1. AMRIX [Suspect]
     Dosage: 1 TABLET ONLY AT 6PM
     Dates: end: 20100710

REACTIONS (4)
  - ANGER [None]
  - DISORIENTATION [None]
  - INDIFFERENCE [None]
  - PHYSICAL ABUSE [None]
